FAERS Safety Report 10071003 (Version 2)
Quarter: 2014Q2

REPORT INFORMATION
  Report Type: Spontaneous
  Country: DE (occurrence: DE)
  Receive Date: 20140410
  Receipt Date: 20140410
  Transmission Date: 20141212
  Serious: Yes (Hospitalization)
  Sender: FDA-Public Use
  Company Number: DE-BRISTOL-MYERS SQUIBB COMPANY-20382891

PATIENT
  Age: 75 Year
  Sex: Male
  Weight: 70 kg

DRUGS (5)
  1. ELIQUIS [Suspect]
     Indication: ATRIAL FIBRILLATION
     Dosage: INTRPTD ON 10MAR2014
     Dates: start: 20130916
  2. ELIQUIS [Suspect]
     Indication: ISCHAEMIC CARDIOMYOPATHY
     Dosage: INTRPTD ON 10MAR2014
     Dates: start: 20130916
  3. ELIQUIS [Suspect]
     Indication: VENTRICULAR FIBRILLATION
     Dosage: INTRPTD ON 10MAR2014
     Dates: start: 20130916
  4. ELIQUIS [Suspect]
     Indication: ANEURYSM
     Dosage: INTRPTD ON 10MAR2014
     Dates: start: 20130916
  5. AMIODARONE [Suspect]

REACTIONS (6)
  - Ventricular fibrillation [Unknown]
  - Ventricular flutter [Unknown]
  - Gamma-glutamyltransferase increased [Unknown]
  - Blood creatinine increased [Unknown]
  - Transaminases increased [Unknown]
  - Herpes zoster [Unknown]
